FAERS Safety Report 8542767-7 (Version None)
Quarter: 2012Q3

REPORT INFORMATION
  Report Type: 
  Country: None (occurrence: None)
  Receive Date: 20120727
  Receipt Date: 20120718
  Transmission Date: 20120928
  Serious: No
  Sender: FDA-Public Use
  Company Number: US-BIOGENIDEC-2012BI026626

PATIENT
  Sex: Female

DRUGS (1)
  1. TYSABRI [Suspect]
     Indication: MULTIPLE SCLEROSIS
     Route: 042
     Dates: start: 20120413, end: 20120608

REACTIONS (7)
  - PAIN IN EXTREMITY [None]
  - MIGRAINE [None]
  - ABDOMINAL PAIN UPPER [None]
  - DIARRHOEA [None]
  - SKIN DISCOLOURATION [None]
  - NAUSEA [None]
  - FATIGUE [None]
